FAERS Safety Report 9685855 (Version 1)
Quarter: 2013Q4

REPORT INFORMATION
  Report Type: Spontaneous
  Country: US (occurrence: US)
  Receive Date: 20131113
  Receipt Date: 20131113
  Transmission Date: 20140711
  Serious: No
  Sender: FDA-Public Use
  Company Number: US-009507513-1311USA002600

PATIENT
  Age: 72 Year
  Sex: Female

DRUGS (2)
  1. VYTORIN [Suspect]
     Indication: BLOOD CHOLESTEROL INCREASED
     Dosage: 1 DF, DAILY AT NIGHT
     Route: 048
     Dates: start: 2003, end: 2013
  2. VYTORIN [Suspect]
     Dosage: 1 DF, DAILY AT NIGHT
     Route: 048
     Dates: start: 2013

REACTIONS (2)
  - Hepatic steatosis [Not Recovered/Not Resolved]
  - Blood cholesterol increased [Not Recovered/Not Resolved]
